FAERS Safety Report 19569370 (Version 1)
Quarter: 2021Q3

REPORT INFORMATION
  Report Type: Spontaneous
  Country: DE (occurrence: JP)
  Receive Date: 20210716
  Receipt Date: 20210716
  Transmission Date: 20211014
  Serious: Yes (Other)
  Sender: FDA-Public Use
  Company Number: JP-ELI_LILLY_AND_COMPANY-JP202107005613

PATIENT
  Age: 76 Year
  Sex: Male

DRUGS (3)
  1. ERBITUX [Suspect]
     Active Substance: CETUXIMAB
     Indication: GLOTTIS CARCINOMA
     Dosage: UNK, UNKNOWN
     Route: 041
  2. FLUOROURACIL. [Concomitant]
     Active Substance: FLUOROURACIL
     Indication: GLOTTIS CARCINOMA
     Dosage: UNK
  3. CISPLATIN. [Concomitant]
     Active Substance: CISPLATIN
     Indication: GLOTTIS CARCINOMA
     Dosage: UNK

REACTIONS (1)
  - Myelosuppression [Unknown]
